FAERS Safety Report 4492267-9 (Version None)
Quarter: 2004Q3

REPORT INFORMATION
  Report Type: 
  Country: None (occurrence: None)
  Receive Date: 20040920
  Receipt Date: 20040607
  Transmission Date: 20050211
  Serious: Yes (Other)
  Sender: FDA-Public Use
  Company Number: 04-213-0092

PATIENT
  Age: 34 Year
  Sex: Female
  Weight: 94.8018 kg

DRUGS (1)
  1. DOXORUBICIN INJ. 200 MG, BEN VENUE LABS [Suspect]
     Dosage: 120 MG IV Q 2 WEEKS X 4 CYCLES
     Dates: start: 20040604

REACTIONS (4)
  - DYSGEUSIA [None]
  - NAUSEA [None]
  - PRURITUS [None]
  - URTICARIA [None]
